FAERS Safety Report 6978718-6 (Version None)
Quarter: 2010Q3

REPORT INFORMATION
  Report Type: 
  Country: None (occurrence: None)
  Receive Date: 20100913
  Receipt Date: 20100903
  Transmission Date: 20110219
  Serious: Yes (Hospitalization)
  Sender: FDA-Public Use
  Company Number: B0672912A

PATIENT
  Sex: Male

DRUGS (12)
  1. CEFTAZIDIME [Suspect]
     Indication: URINARY TRACT INFECTION
     Dosage: 1G THREE TIMES PER DAY
     Route: 042
     Dates: start: 20100603, end: 20100621
  2. TRIATEC [Concomitant]
     Dosage: 5MG PER DAY
     Route: 048
  3. AMLODIPINE [Concomitant]
     Dosage: 10MG PER DAY
     Route: 048
  4. FLECAINIDE ACETATE [Concomitant]
     Indication: ATRIAL FIBRILLATION
     Dosage: 100MG TWICE PER DAY
     Route: 048
  5. AVLOCARDYL [Concomitant]
     Dosage: 40MG PER DAY
     Route: 048
  6. TRAMADOL HCL [Concomitant]
     Indication: PAIN
     Dosage: 50MG THREE TIMES PER DAY
     Route: 048
  7. NEXIUM [Concomitant]
     Dosage: 40MG PER DAY
     Route: 048
  8. PERFALGAN [Concomitant]
     Indication: HYPERTHERMIA
     Dosage: 1G FOUR TIMES PER DAY
     Route: 042
  9. MOTILIUM [Concomitant]
     Dosage: 10MG THREE TIMES PER DAY
     Route: 048
  10. ALFUZOSIN HCL [Concomitant]
     Indication: PROSTATIC ADENOMA
     Dosage: 10MG PER DAY
     Route: 048
  11. RISPERDAL [Concomitant]
     Dosage: 1ML TWICE PER DAY
     Route: 048
  12. MORPHINE [Concomitant]
     Indication: PAIN
     Dosage: 10MG PER DAY
     Route: 048

REACTIONS (1)
  - HYPERTHERMIA [None]
